FAERS Safety Report 9347156 (Version 1)
Quarter: 2013Q2

REPORT INFORMATION
  Report Type: Spontaneous
  Country: US (occurrence: US)
  Receive Date: 20130613
  Receipt Date: 20130613
  Transmission Date: 20140414
  Serious: No
  Sender: FDA-Public Use
  Company Number: US-009507513-1306USA005378

PATIENT
  Sex: Female

DRUGS (2)
  1. DR. SCHOLL^S FREEZE AWAY COMMON + PLANTAR WART REMOVER [Suspect]
     Indication: SKIN PAPILLOMA
     Route: 061
  2. DR. SCHOLL^S FREEZE AWAY COMMON + PLANTAR WART REMOVER [Suspect]
     Indication: ACROCHORDON

REACTIONS (3)
  - Device malfunction [Unknown]
  - Erythema [Unknown]
  - Therapeutic product ineffective [Unknown]
